FAERS Safety Report 9767965 (Version 1)
Quarter: 2013Q4

REPORT INFORMATION
  Report Type: Report from Study
  Country: US (occurrence: US)
  Receive Date: 20131217
  Receipt Date: 20131217
  Transmission Date: 20140711
  Serious: Yes (Other)
  Sender: FDA-Public Use
  Company Number: US-ABBVIE-13P-163-1177929-00

PATIENT
  Age: 24 Year
  Sex: Male
  Weight: 97.61 kg

DRUGS (2)
  1. HUMIRA [Suspect]
     Indication: PSORIASIS
     Route: 058
     Dates: start: 20131207
  2. BUNCH OF LOTIONS AND CREAMS [Concomitant]
     Indication: PRODUCT USED FOR UNKNOWN INDICATION
     Dosage: HASN^T USED ANY SINCE STARTING HUMIRA

REACTIONS (2)
  - Convulsion [Recovered/Resolved]
  - Syncope [Unknown]
